FAERS Safety Report 19518254 (Version 2)
Quarter: 2021Q3

REPORT INFORMATION
  Report Type: Report from Study
  Country: None (occurrence: US)
  Receive Date: 20210712
  Receipt Date: 20210812
  Transmission Date: 20211014
  Serious: Yes (Hospitalization, Other)
  Sender: FDA-Public Use
  Company Number: US-ABBVIE-21K-163-3899820-00

PATIENT
  Age: 73 Year
  Sex: Female
  Weight: 51.76 kg

DRUGS (10)
  1. GLUCOSAMINE [Concomitant]
     Active Substance: GLUCOSAMINE
     Indication: PRODUCT USED FOR UNKNOWN INDICATION
  2. HUMIRA [Suspect]
     Active Substance: ADALIMUMAB
     Indication: COLITIS ULCERATIVE
     Dosage: CITRATE FREE
     Route: 058
     Dates: start: 2018, end: 202102
  3. HUMIRA [Suspect]
     Active Substance: ADALIMUMAB
     Dosage: CITRATE FREE
     Route: 058
     Dates: start: 202103, end: 202106
  4. MODERNA COVID?19 VACCINE [Suspect]
     Active Substance: CX-024414
     Route: 030
     Dates: start: 20210301, end: 20210301
  5. ATORVASTATIN [Concomitant]
     Active Substance: ATORVASTATIN
     Indication: BLOOD CHOLESTEROL
  6. CRANBERRY. [Concomitant]
     Active Substance: CRANBERRY
     Indication: SUPPLEMENTATION THERAPY
  7. HUMIRA [Suspect]
     Active Substance: ADALIMUMAB
     Dosage: CITRATE FREE
     Route: 058
     Dates: start: 202107
  8. MODERNA COVID?19 VACCINE [Suspect]
     Active Substance: CX-024414
     Indication: COVID-19 IMMUNISATION
     Route: 030
     Dates: start: 20210201, end: 20210201
  9. VITAMIN D3 [Concomitant]
     Active Substance: CHOLECALCIFEROL
     Indication: PRODUCT USED FOR UNKNOWN INDICATION
  10. ASPIRIN. [Concomitant]
     Active Substance: ASPIRIN
     Indication: CARDIAC DISORDER

REACTIONS (21)
  - Fall [Recovered/Resolved]
  - Papule [Recovered/Resolved]
  - Flatulence [Unknown]
  - Colitis ulcerative [Not Recovered/Not Resolved]
  - Heart valve incompetence [Recovered/Resolved]
  - Head injury [Recovered/Resolved]
  - Stomach mass [Unknown]
  - Urinary incontinence [Recovering/Resolving]
  - Therapeutic response shortened [Unknown]
  - Ischaemic stroke [Recovered/Resolved]
  - Fall [Recovered/Resolved]
  - Dizziness [Recovered/Resolved]
  - Back pain [Recovering/Resolving]
  - Feeding disorder [Recovered/Resolved]
  - Nodule [Recovered/Resolved]
  - Aphasia [Recovered/Resolved]
  - Incisional hernia [Not Recovered/Not Resolved]
  - Gastroenteritis viral [Recovered/Resolved]
  - Loss of consciousness [Recovered/Resolved]
  - Osteoporosis [Not Recovered/Not Resolved]
  - Spinal fracture [Recovering/Resolving]

NARRATIVE: CASE EVENT DATE: 201802
